FAERS Safety Report 11330642 (Version 1)
Quarter: 2015Q3

REPORT INFORMATION
  Report Type: Spontaneous
  Country: US (occurrence: None)
  Receive Date: 20150731
  Receipt Date: 20150731
  Transmission Date: 20151125
  Serious: No
  Sender: FDA-Public Use
  Company Number: None

PATIENT
  Age: 66 Year
  Sex: Female

DRUGS (1)
  1. IBRANCE [Suspect]
     Active Substance: PALBOCICLIB
     Indication: BREAST CANCER
     Dosage: 125MG  DAILY FOR 21 DAYS OFF 7 DAYS  PO
     Route: 048
     Dates: start: 20150723, end: 20150728

REACTIONS (5)
  - Nausea [None]
  - Abdominal pain upper [None]
  - Vomiting [None]
  - Dyspnoea [None]
  - Dyspepsia [None]

NARRATIVE: CASE EVENT DATE: 20150724
